FAERS Safety Report 10096782 (Version 1)
Quarter: 2014Q2

REPORT INFORMATION
  Report Type: Spontaneous
  Country: SE (occurrence: SE)
  Receive Date: 20140422
  Receipt Date: 20140422
  Transmission Date: 20141212
  Serious: Yes (Hospitalization)
  Sender: FDA-Public Use
  Company Number: SE-WATSON-2013-25434

PATIENT
  Age: 31 Year
  Sex: Female

DRUGS (6)
  1. CARBOPLATIN ACTAVIS [Suspect]
     Indication: PRODUCT USED FOR UNKNOWN INDICATION
     Dosage: UNK
     Route: 042
     Dates: start: 20130318, end: 20130318
  2. CARBOPLATIN ACTAVIS [Suspect]
     Dosage: UNK
     Route: 042
     Dates: start: 20130411, end: 20130411
  3. CARBOPLATIN ACTAVIS [Suspect]
     Dosage: UNK
     Route: 042
     Dates: start: 20130502, end: 20130502
  4. PACLITAXEL ACTAVIS [Suspect]
     Indication: PRODUCT USED FOR UNKNOWN INDICATION
     Dosage: UNK
     Route: 042
     Dates: start: 20130318, end: 20130318
  5. PACLITAXEL ACTAVIS [Suspect]
     Dosage: UNK
     Route: 042
     Dates: start: 20130411, end: 20130411
  6. PACLITAXEL ACTAVIS [Suspect]
     Dosage: UNK
     Route: 042
     Dates: start: 20130502, end: 20130502

REACTIONS (3)
  - Embolism arterial [Recovered/Resolved with Sequelae]
  - Pulmonary embolism [Recovered/Resolved with Sequelae]
  - Cerebral infarction [Recovered/Resolved with Sequelae]
